FAERS Safety Report 7747436-9 (Version None)
Quarter: 2011Q3

REPORT INFORMATION
  Report Type: 
  Country: None (occurrence: None)
  Receive Date: 20110913
  Receipt Date: 20110909
  Transmission Date: 20111222
  Serious: Yes (Other)
  Sender: FDA-Public Use
  Company Number: DE-GLAXOSMITHKLINE-D0072655A

PATIENT
  Sex: Male

DRUGS (2)
  1. SEROQUEL [Suspect]
     Route: 065
  2. REQUIP [Suspect]
     Route: 065

REACTIONS (4)
  - FEAR [None]
  - PARANOIA [None]
  - DRUG INTERACTION [None]
  - HALLUCINATIONS, MIXED [None]
